FAERS Safety Report 9333918 (Version 2)
Quarter: 2013Q4

REPORT INFORMATION
  Report Type: Spontaneous
  Country: US (occurrence: US)
  Receive Date: 20130606
  Receipt Date: 20131008
  Transmission Date: 20140711
  Serious: No
  Sender: FDA-Public Use
  Company Number: US-AMGEN-USASP2012077114

PATIENT
  Age: 82 Year
  Sex: Female

DRUGS (7)
  1. PROLIA [Suspect]
     Indication: OSTEOPENIA
     Dosage: 60 MG/ML, UNK
     Dates: start: 20121025
  2. CALCIUM [Concomitant]
  3. VITAMIN D                          /00107901/ [Concomitant]
  4. LOTREL [Concomitant]
  5. VITAMIN C                          /00008001/ [Concomitant]
  6. COD LIVER OIL [Concomitant]
  7. MULTIVITAMIN                       /00097801/ [Concomitant]

REACTIONS (4)
  - Mobility decreased [Not Recovered/Not Resolved]
  - Sensation of heaviness [Unknown]
  - Back pain [Not Recovered/Not Resolved]
  - Arthralgia [Not Recovered/Not Resolved]
